FAERS Safety Report 5075566-1 (Version None)
Quarter: 2006Q3

REPORT INFORMATION
  Report Type: 
  Country: None (occurrence: None)
  Receive Date: 20060809
  Receipt Date: 20060609
  Transmission Date: 20061208
  Serious: Yes (Death, Hospitalization)
  Sender: FDA-Public Use
  Company Number: DE-BRISTOL-MYERS SQUIBB COMPANY-13417712

PATIENT
  Age: 69 Year
  Sex: Male

DRUGS (2)
  1. ERBITUX [Suspect]
     Indication: HYPOPHARYNGEAL CANCER
  2. RADIOTHERAPY [Concomitant]
     Indication: HYPOPHARYNGEAL CANCER

REACTIONS (4)
  - BRONCHITIS BACTERIAL [None]
  - DISEASE PROGRESSION [None]
  - ISCHAEMIC CEREBRAL INFARCTION [None]
  - PNEUMONIA [None]
